FAERS Safety Report 4608511-0 (Version None)
Quarter: 2005Q1

REPORT INFORMATION
  Report Type: 
  Country: None (occurrence: None)
  Receive Date: 20050315
  Receipt Date: 20050311
  Transmission Date: 20050727
  Serious: Yes (Hospitalization)
  Sender: FDA-Public Use
  Company Number: 200512205GDDC

PATIENT
  Age: 68 Year
  Sex: Female

DRUGS (4)
  1. FLUDEX [Suspect]
     Route: 048
     Dates: start: 20040615
  2. TRIATEC [Suspect]
     Route: 048
     Dates: start: 20040615
  3. PLAVIX [Suspect]
     Route: 048
     Dates: start: 20040615
  4. TAHOR [Concomitant]
     Dosage: DOSE: UNK
     Dates: start: 20040715, end: 20050204

REACTIONS (1)
  - ERYTHEMA NODOSUM [None]
